FAERS Safety Report 6827627-1 (Version None)
Quarter: 2010Q3

REPORT INFORMATION
  Report Type: 
  Country: None (occurrence: None)
  Receive Date: 20100709
  Receipt Date: 20070121
  Transmission Date: 20110219
  Serious: No
  Sender: FDA-Public Use
  Company Number: US-PFIZER INC-2007005962

PATIENT
  Sex: Female
  Weight: 90.72 kg

DRUGS (18)
  1. CHANTIX [Suspect]
     Indication: SMOKING CESSATION THERAPY
     Dates: start: 20070119
  2. ATENOLOL [Concomitant]
  3. TRAZODONE [Concomitant]
  4. VYTORIN [Concomitant]
  5. PROTONIX [Concomitant]
  6. PLAVIX [Concomitant]
  7. AMBIEN [Concomitant]
  8. CITALOPRAM HYDROBROMIDE [Concomitant]
  9. FOSAMAX [Concomitant]
  10. SEROQUEL [Concomitant]
  11. HYZAAR [Concomitant]
  12. DOXAZOSIN [Concomitant]
  13. WARFARIN [Concomitant]
  14. VERAPAMIL [Concomitant]
  15. ACETYLSALICYLIC ACID [Concomitant]
  16. CENTRUM SILVER [Concomitant]
  17. CALTRATE + D [Concomitant]
  18. FISH OIL [Concomitant]

REACTIONS (3)
  - DECREASED APPETITE [None]
  - DIARRHOEA [None]
  - NAUSEA [None]
